FAERS Safety Report 5208354-3 (Version None)
Quarter: 2007Q1

REPORT INFORMATION
  Report Type: 
  Country: None (occurrence: None)
  Receive Date: 20070111
  Receipt Date: 20070111
  Transmission Date: 20070707
  Serious: Yes (Life-Threatening, Hospitalization, Disabling, Other)
  Sender: FDA-Public Use
  Company Number: None

PATIENT
  Sex: Female
  Weight: 70.3075 kg

DRUGS (4)
  1. ATIVAN [Suspect]
     Indication: ANXIETY
     Dosage: .5 MG AS NEEDED PO
     Route: 048
     Dates: start: 20040104, end: 20051222
  2. ATIVAN [Suspect]
     Indication: OVERDOSE
     Dosage: .5 MG AS NEEDED PO
     Route: 048
     Dates: start: 20040104, end: 20051222
  3. ATIVAN [Suspect]
     Indication: PANIC REACTION
     Dosage: .5 MG AS NEEDED PO
     Route: 048
     Dates: start: 20040104, end: 20051222
  4. ATIVAN [Concomitant]

REACTIONS (1)
  - EMOTIONAL DISTRESS [None]
